FAERS Safety Report 18497553 (Version 1)
Quarter: 2020Q4

REPORT INFORMATION
  Report Type: Spontaneous
  Country: MY (occurrence: MY)
  Receive Date: 20201112
  Receipt Date: 20201112
  Transmission Date: 20210114
  Serious: Yes (Other)
  Sender: FDA-Public Use
  Company Number: MY-IPCA LABORATORIES LIMITED-IPC-2020-MY-003416

PATIENT

DRUGS (10)
  1. SPIRONOLACTONE. [Interacting]
     Active Substance: SPIRONOLACTONE
     Indication: ESSENTIAL HYPERTENSION
     Dosage: 50 MILLIGRAM, BID
     Route: 065
  2. AKURIT-4 [Interacting]
     Active Substance: ETHAMBUTOL HYDROCHLORIDE\ISONIAZID\PYRAZINAMIDE\RIFAMYCIN
     Indication: PULMONARY TUBERCULOSIS
     Dosage: 3 UNK, QD
     Route: 065
     Dates: end: 201910
  3. METHYLDOPA. [Interacting]
     Active Substance: METHYLDOPA
     Indication: ESSENTIAL HYPERTENSION
     Dosage: 1 GRAM, TID
     Route: 065
  4. PERINDOPRIL [Concomitant]
     Active Substance: PERINDOPRIL
     Indication: ESSENTIAL HYPERTENSION
     Dosage: 4 MILLIGRAM, QD
     Route: 065
  5. ENALAPRIL [Interacting]
     Active Substance: ENALAPRIL
     Indication: ESSENTIAL HYPERTENSION
     Dosage: 20 MILLIGRAM, BID
     Route: 065
  6. FELODIPINE. [Interacting]
     Active Substance: FELODIPINE
     Indication: ESSENTIAL HYPERTENSION
     Dosage: 10 MILLIGRAM, BID
     Route: 065
  7. PYRIDOXINE [Concomitant]
     Active Substance: PYRIDOXINE
     Indication: PULMONARY TUBERCULOSIS
     Dosage: 10 MILLIGRAM, QD
     Route: 065
     Dates: end: 201910
  8. PRAZOSIN. [Interacting]
     Active Substance: PRAZOSIN
     Indication: ESSENTIAL HYPERTENSION
     Dosage: 5 MILLIGRAM, QID
     Route: 065
  9. METOPROLOL. [Suspect]
     Active Substance: METOPROLOL
     Indication: ESSENTIAL HYPERTENSION
     Dosage: 100 MILLIGRAM, BID
     Route: 065
  10. AMLODIPINE [Interacting]
     Active Substance: AMLODIPINE BESYLATE
     Indication: ESSENTIAL HYPERTENSION
     Dosage: 10 MILLIGRAM, QD
     Route: 065

REACTIONS (3)
  - Hypertension [Recovering/Resolving]
  - Drug interaction [Unknown]
  - Drug ineffective [Unknown]
